FAERS Safety Report 20282230 (Version 1)
Quarter: 2022Q1

REPORT INFORMATION
  Report Type: Spontaneous
  Country: US (occurrence: US)
  Receive Date: 20220103
  Receipt Date: 20220103
  Transmission Date: 20220424
  Serious: Yes (Other)
  Sender: FDA-Public Use
  Company Number: US-BAYER-2022A000303

PATIENT
  Age: 21 Year
  Sex: Male

DRUGS (1)
  1. ALKA-SELTZER PLUS NOS [Suspect]
     Active Substance: ACETAMINOPHEN\ASPIRIN\CHLORPHENIRAMINE MALEATE\DEXTROMETHORPHAN HYDROBROMIDE\DIPHENHYDRAMINE HYDROCH
     Dosage: 1 DF
     Route: 048

REACTIONS (3)
  - Foreign body in throat [Unknown]
  - Oropharyngeal pain [Unknown]
  - Tinnitus [Unknown]

NARRATIVE: CASE EVENT DATE: 20211230
